FAERS Safety Report 6896817-4 (Version None)
Quarter: 2010Q3

REPORT INFORMATION
  Report Type: 
  Country: None (occurrence: None)
  Receive Date: 20100729
  Receipt Date: 20100712
  Transmission Date: 20110219
  Serious: Yes (Death, Hospitalization)
  Sender: FDA-Public Use
  Company Number: FKO201000286

PATIENT
  Age: 69 Year
  Sex: Female

DRUGS (4)
  1. OXALIPLATIN [Suspect]
     Indication: COLORECTAL CANCER METASTATIC
     Dosage: (85 MG/M2, ON DAY 1, EVERY 2 WEEKS)
     Dates: start: 20090528, end: 20090826
  2. FLUOROURACIL [Concomitant]
  3. LEUCOVORIN (CALCIUM FOLINATE) (CALCIUM FOLINATE) [Concomitant]
  4. CETUXIMAB (CETUXIMAB) (CETUXIMAB) [Concomitant]

REACTIONS (7)
  - ACUTE RESPIRATORY DISTRESS SYNDROME [None]
  - FUNGAL INFECTION [None]
  - HYPOXIA [None]
  - INTERSTITIAL LUNG DISEASE [None]
  - METASTASES TO LUNG [None]
  - RESPIRATORY FAILURE [None]
  - SPUTUM CULTURE POSITIVE [None]
